FAERS Safety Report 5473174-1 (Version None)
Quarter: 2007Q4

REPORT INFORMATION
  Report Type: 
  Country: None (occurrence: None)
  Receive Date: 20071001
  Receipt Date: 20070920
  Transmission Date: 20080405
  Serious: Yes (Hospitalization)
  Sender: FDA-Public Use
  Company Number: US-MERCK-0709USA03945

PATIENT
  Age: 53 Year
  Sex: Male

DRUGS (2)
  1. PRIMAXIN [Suspect]
     Route: 042
     Dates: start: 20020518, end: 20020518
  2. MAXIPIME [Concomitant]
     Route: 065
     Dates: start: 20020518

REACTIONS (4)
  - ERYTHEMA [None]
  - PRURITUS [None]
  - RASH [None]
  - URTICARIA [None]
